FAERS Safety Report 11689981 (Version 2)
Quarter: 2016Q2

REPORT INFORMATION
  Report Type: Spontaneous
  Country: US (occurrence: US)
  Receive Date: 20151102
  Receipt Date: 20160414
  Transmission Date: 20160815
  Serious: Yes (Congenital Anomaly, Other)
  Sender: FDA-Public Use
  Company Number: US-APOTEX-2015AP013962

PATIENT
  Age: 1 Day
  Sex: Male
  Weight: 2.5 kg

DRUGS (5)
  1. PAXIL [Suspect]
     Active Substance: PAROXETINE HYDROCHLORIDE
     Indication: ANXIETY
     Dosage: 20 MG, QD
     Route: 064
  2. PAXIL [Suspect]
     Active Substance: PAROXETINE HYDROCHLORIDE
     Dosage: 40 UNK, UNK
  3. PAXIL [Suspect]
     Active Substance: PAROXETINE HYDROCHLORIDE
     Indication: DEPRESSION
     Dosage: 30 UNK, UNK
  4. XANAX [Concomitant]
     Active Substance: ALPRAZOLAM
     Indication: PRODUCT USED FOR UNKNOWN INDICATION
     Dosage: UNK
     Route: 064
  5. PRENATAL VITAMINS                  /07426201/ [Concomitant]
     Active Substance: ASCORBIC ACID\BIOTIN\MINERALS\NIACIN\RETINOL\TOCOPHEROL\VITAMIN B\VITAMIN D
     Indication: PRODUCT USED FOR UNKNOWN INDICATION
     Dosage: UNK
     Route: 064

REACTIONS (12)
  - Anomalous pulmonary venous connection [Recovering/Resolving]
  - Tourette^s disorder [Unknown]
  - Drug withdrawal syndrome neonatal [Unknown]
  - Pulmonary hypertension [Unknown]
  - Patent ductus arteriosus [Recovered/Resolved]
  - Neonatal respiratory distress syndrome [Unknown]
  - Speech disorder developmental [Recovering/Resolving]
  - Anxiety [Not Recovered/Not Resolved]
  - Learning disability [Recovering/Resolving]
  - Attention deficit/hyperactivity disorder [Unknown]
  - Fine motor delay [Not Recovered/Not Resolved]
  - Foetal exposure during pregnancy [Unknown]

NARRATIVE: CASE EVENT DATE: 20000531
